FAERS Safety Report 10465315 (Version 4)
Quarter: 2014Q4

REPORT INFORMATION
  Report Type: Report from Study
  Country: US (occurrence: US)
  Receive Date: 20140919
  Receipt Date: 20141006
  Transmission Date: 20150528
  Serious: Yes (Death, Hospitalization)
  Sender: FDA-Public Use
  Company Number: US-SA-2014SA085667

PATIENT
  Age: 23 Year
  Sex: Female
  Weight: 77 kg

DRUGS (14)
  1. CLOFARABINE [Suspect]
     Active Substance: CLOFARABINE
     Indication: B PRECURSOR TYPE ACUTE LEUKAEMIA
     Route: 065
     Dates: start: 20140318
  2. CLOFARABINE [Suspect]
     Active Substance: CLOFARABINE
     Indication: B PRECURSOR TYPE ACUTE LEUKAEMIA
     Route: 065
     Dates: start: 20140423
  3. CYCLOPHOSPHAMIDE. [Suspect]
     Active Substance: CYCLOPHOSPHAMIDE
     Indication: B PRECURSOR TYPE ACUTE LEUKAEMIA
     Route: 065
     Dates: start: 20140423
  4. AMPHOTERICIN B. [Concomitant]
     Active Substance: AMPHOTERICIN B
     Dates: start: 201407
  5. ETOPOSIDE. [Suspect]
     Active Substance: ETOPOSIDE
     Indication: B PRECURSOR TYPE ACUTE LEUKAEMIA
     Route: 065
     Dates: start: 20140318
  6. ETOPOSIDE. [Suspect]
     Active Substance: ETOPOSIDE
     Indication: B PRECURSOR TYPE ACUTE LEUKAEMIA
     Route: 065
     Dates: start: 20140423
  7. VORICONAZOLE. [Concomitant]
     Active Substance: VORICONAZOLE
     Dates: start: 201407
  8. GRANULOCYTE COLONY STIMULATING FACTOR [Concomitant]
     Active Substance: GRANULOCYTE COLONY-STIMULATING FACTOR NOS
     Dates: start: 20140712, end: 20140726
  9. CYCLOPHOSPHAMIDE. [Suspect]
     Active Substance: CYCLOPHOSPHAMIDE
     Indication: B PRECURSOR TYPE ACUTE LEUKAEMIA
     Route: 065
     Dates: start: 20140318
  10. GRANULOCYTE COLONY STIMULATING FACTOR [Concomitant]
     Active Substance: GRANULOCYTE COLONY-STIMULATING FACTOR NOS
     Dates: start: 20140728
  11. PLATELETS [Concomitant]
     Active Substance: HUMAN PLATELET, ALLOGENIC
  12. RED BLOOD CELLS [Concomitant]
     Active Substance: HUMAN RED BLOOD CELL
  13. GENTAMICIN. [Concomitant]
     Active Substance: GENTAMICIN
  14. CASPOFUNGIN [Concomitant]
     Active Substance: CASPOFUNGIN
     Dates: start: 201407

REACTIONS (19)
  - Hypokalaemia [Recovered/Resolved]
  - Blood culture positive [Recovered/Resolved]
  - Hypocalcaemia [Recovered/Resolved]
  - Wound infection [Recovered/Resolved]
  - Lung infection [Recovered/Resolved]
  - Acute kidney injury [Fatal]
  - Aspartate aminotransferase increased [Recovered/Resolved]
  - Alanine aminotransferase increased [Recovered/Resolved]
  - Sepsis [Recovered/Resolved]
  - Amylase increased [Recovered/Resolved]
  - Blood bilirubin increased [Recovered/Resolved]
  - Capillary leak syndrome [Recovered/Resolved]
  - Lipase increased [Recovered/Resolved]
  - Pulmonary oedema [Recovered/Resolved]
  - Enterocolitis infectious [Recovered/Resolved]
  - Skin ulcer [Recovered/Resolved]
  - Skin infection [Recovered/Resolved]
  - Bone marrow failure [Recovered/Resolved]
  - Palmar-plantar erythrodysaesthesia syndrome [Recovered/Resolved]

NARRATIVE: CASE EVENT DATE: 20140610
